FAERS Safety Report 8890896 (Version 1)
Quarter: 2012Q4

REPORT INFORMATION
  Report Type: 
  Country: US (occurrence: US)
  Receive Date: 20121106
  Receipt Date: 20121106
  Transmission Date: 20130627
  Serious: Yes (Other)
  Sender: FDA-Public Use
  Company Number: US-ELI_LILLY_AND_COMPANY-US201210007813

PATIENT
  Age: 55 Year
  Sex: Male

DRUGS (2)
  1. CYMBALTA [Suspect]
     Dosage: 30 mg, qd
  2. OTHER MUSCLE RELAXANTS, PERIPHERALLY ACTING A [Concomitant]

REACTIONS (1)
  - Homicidal ideation [Recovering/Resolving]
